FAERS Safety Report 23093570 (Version 1)
Quarter: 2023Q4

REPORT INFORMATION
  Report Type: Spontaneous
  Country: US (occurrence: None)
  Receive Date: 20231023
  Receipt Date: 20231023
  Transmission Date: 20240109
  Serious: No
  Sender: FDA-Public Use
  Company Number: US-SUPERNUS Pharmaceuticals, Inc.-SUP202307-002903

PATIENT
  Age: 44 Year
  Sex: Female
  Weight: 68.03 kg

DRUGS (4)
  1. QELBREE [Suspect]
     Active Substance: VILOXAZINE HYDROCHLORIDE
     Indication: Post-acute COVID-19 syndrome
     Route: 048
     Dates: start: 202301
  2. QELBREE [Suspect]
     Active Substance: VILOXAZINE HYDROCHLORIDE
     Dosage: 400MG
     Route: 048
  3. QELBREE [Suspect]
     Active Substance: VILOXAZINE HYDROCHLORIDE
     Dosage: DOSE WAS DECREASED BY 20% A WEEK AND FURTHER SHE DECREASED THE DOSE 3 TIMES
     Route: 048
  4. LEVOTHYROXINE [Concomitant]
     Active Substance: LEVOTHYROXINE
     Indication: Thyroid disorder

REACTIONS (12)
  - Blindness transient [Unknown]
  - Hypoacusis [Unknown]
  - Photophobia [Unknown]
  - Balance disorder [Unknown]
  - Migraine [Unknown]
  - Headache [Unknown]
  - Constipation [Unknown]
  - Dry mouth [Unknown]
  - Nausea [Unknown]
  - Vomiting [Unknown]
  - Product dose omission issue [Unknown]
  - Product use in unapproved indication [Unknown]

NARRATIVE: CASE EVENT DATE: 20230101
